FAERS Safety Report 15989484 (Version 1)
Quarter: 2019Q1

REPORT INFORMATION
  Report Type: Spontaneous
  Country: US (occurrence: US)
  Receive Date: 20190221
  Receipt Date: 20190221
  Transmission Date: 20190418
  Serious: No
  Sender: FDA-Public Use
  Company Number: US-PFIZER INC-2019066678

PATIENT
  Sex: Male

DRUGS (1)
  1. DEPO-ESTRADIOL [Suspect]
     Active Substance: ESTRADIOL CYPIONATE
     Dosage: UNK

REACTIONS (4)
  - Product use issue [Unknown]
  - Poor quality product administered [Unknown]
  - Product storage error [Unknown]
  - Injection site mass [Unknown]
